FAERS Safety Report 9282818 (Version 2)
Quarter: 2013Q2

REPORT INFORMATION
  Report Type: Spontaneous
  Country: US (occurrence: None)
  Receive Date: 20101208
  Receipt Date: 20130419
  Transmission Date: 20140414
  Serious: Yes (Life-Threatening, Hospitalization)
  Sender: FDA-Public Use
  Company Number: 54973 RSAE112210CMD001

PATIENT
  Age: 17 Month
  Sex: Male
  Weight: 13 kg

DRUGS (1)
  1. HYLAND^S TEETHING TABLETS [Suspect]
     Indication: TEETHING
     Dosage: 2 TABS  @  HS  OR  2  BID

REACTIONS (6)
  - Sleep terror [None]
  - Diarrhoea [None]
  - Constipation [None]
  - Mydriasis [None]
  - Tremor [None]
  - Hyperhidrosis [None]
